FAERS Safety Report 8780865 (Version 2)
Quarter: 2013Q1

REPORT INFORMATION
  Report Type: Spontaneous
  Country: US (occurrence: US)
  Receive Date: 20120913
  Receipt Date: 20130220
  Transmission Date: 20140127
  Serious: Yes (Hospitalization, Other)
  Sender: FDA-Public Use
  Company Number: US-009507513-1209USA000690

PATIENT
  Sex: Male

DRUGS (3)
  1. PEG-INTRON [Suspect]
     Indication: HEPATITIS C
     Dosage: UNK
     Dates: start: 20120319, end: 20121119
  2. RIBAVIRIN [Suspect]
     Indication: HEPATITIS C
     Dosage: UNK
     Dates: start: 20120319, end: 20121119
  3. VICTRELIS [Suspect]
     Indication: HEPATITIS C
     Dosage: UNK
     Dates: start: 20120416, end: 20121119

REACTIONS (8)
  - Pneumonia [Unknown]
  - Dehydration [Unknown]
  - Abdominal distension [Not Recovered/Not Resolved]
  - Red blood cell count decreased [Unknown]
  - Weight decreased [Unknown]
  - Dysgeusia [Unknown]
  - Anaemia [Unknown]
  - Haemoglobin decreased [Unknown]
